FAERS Safety Report 6479984-6 (Version None)
Quarter: 2009Q4

REPORT INFORMATION
  Report Type: 
  Country: None (occurrence: None)
  Receive Date: 20091119
  Receipt Date: 20091007
  Transmission Date: 20100525
  Serious: No
  Sender: FDA-Public Use
  Company Number: WAES 0910USA00880

PATIENT
  Age: 68 Year
  Sex: Female

DRUGS (3)
  1. JANUVIA [Suspect]
     Indication: DIABETES MELLITUS
     Dosage: 100 MG/DAILY/PO
     Route: 048
     Dates: start: 20091003, end: 20091003
  2. LIPITOR [Concomitant]
  3. LISINOPRIL [Concomitant]

REACTIONS (1)
  - FEELING ABNORMAL [None]
